FAERS Safety Report 5734933-0 (Version None)
Quarter: 2008Q2

REPORT INFORMATION
  Report Type: 
  Country: None (occurrence: None)
  Receive Date: 20080509
  Receipt Date: 20080501
  Transmission Date: 20081010
  Serious: Yes (Other)
  Sender: FDA-Public Use
  Company Number: 08H-163-0314232-00

PATIENT
  Age: 64 Year
  Sex: Male
  Weight: 93.441 kg

DRUGS (2)
  1. HEPARIN SODIUM INJECTION [Suspect]
     Dosage: 300 UNITS/3 ML, INTRAVENOUS : 300 UNITS/3 ML, INTRAVENOUS
     Route: 042
     Dates: start: 20080121, end: 20080121
  2. HEPARIN SODIUM INJECTION [Suspect]
     Dosage: 300 UNITS/3 ML, INTRAVENOUS : 300 UNITS/3 ML, INTRAVENOUS
     Route: 042
     Dates: start: 20080122, end: 20080122

REACTIONS (11)
  - DIARRHOEA [None]
  - HYPOTENSION [None]
  - MALAISE [None]
  - NAUSEA [None]
  - PALLOR [None]
  - RESPIRATORY DISTRESS [None]
  - SEPSIS [None]
  - TACHYCARDIA [None]
  - THIRST [None]
  - UNRESPONSIVE TO STIMULI [None]
  - VOMITING [None]
